FAERS Safety Report 22121926 (Version 2)
Quarter: 2023Q1

REPORT INFORMATION
  Report Type: Spontaneous
  Country: US (occurrence: None)
  Receive Date: 20230321
  Receipt Date: 20230329
  Transmission Date: 20230417
  Serious: No
  Sender: FDA-Public Use
  Company Number: 2023A066845

PATIENT
  Age: 70 Year
  Sex: Female

DRUGS (3)
  1. SEROQUEL [Suspect]
     Active Substance: QUETIAPINE FUMARATE
     Indication: Mood altered
     Dosage: 50 MG AT ONE AND ONE-HALF TABLETS (75 MG) AT BEDTIME
     Route: 048
  2. SEROQUEL [Suspect]
     Active Substance: QUETIAPINE FUMARATE
     Indication: Sleep disorder
     Dosage: 50 MG AT ONE AND ONE-HALF TABLETS (75 MG) AT BEDTIME
     Route: 048
  3. DOXEPIN [Concomitant]
     Active Substance: DOXEPIN

REACTIONS (4)
  - Fall [Unknown]
  - Pain [Not Recovered/Not Resolved]
  - Syncope [Unknown]
  - Extra dose administered [Unknown]

NARRATIVE: CASE EVENT DATE: 20220101
